FAERS Safety Report 6795741-5 (Version None)
Quarter: 2010Q2

REPORT INFORMATION
  Report Type: 
  Country: None (occurrence: None)
  Receive Date: 20100625
  Receipt Date: 20100615
  Transmission Date: 20101027
  Serious: Yes (Hospitalization)
  Sender: FDA-Public Use
  Company Number: US-BRISTOL-MYERS SQUIBB COMPANY-14805733

PATIENT
  Age: 51 Year
  Sex: Female
  Weight: 101 kg

DRUGS (28)
  1. CETUXIMAB [Suspect]
     Indication: NON-SMALL CELL LUNG CANCER
     Dosage: RECENT INF:18SEP09 (2ND)
     Route: 042
     Dates: start: 20090909, end: 20090918
  2. CARBOPLATIN [Suspect]
     Indication: NON-SMALL CELL LUNG CANCER
     Route: 042
     Dates: start: 20090909, end: 20090909
  3. PEMETREXED DISODIUM [Suspect]
     Indication: NON-SMALL CELL LUNG CANCER
     Route: 042
     Dates: start: 20090909, end: 20090909
  4. CLONIDINE [Concomitant]
     Indication: ANXIETY
     Route: 065
     Dates: start: 20040101
  5. CLONAZEPAM [Concomitant]
     Indication: ANXIETY
     Route: 065
     Dates: start: 20040101
  6. LASIX [Concomitant]
     Indication: HYPERTENSION
     Route: 065
     Dates: start: 20040101
  7. METOPROLOL [Concomitant]
     Indication: HYPERTENSION
     Route: 065
     Dates: start: 20030101
  8. NORVASC [Concomitant]
     Indication: HYPERTENSION
     Route: 065
     Dates: start: 20060101
  9. TRAZODONE HCL [Concomitant]
     Indication: INSOMNIA
     Route: 065
     Dates: start: 20040101
  10. POTASSIUM [Concomitant]
     Indication: ELECTROLYTE SUBSTITUTION THERAPY
     Route: 065
     Dates: start: 20040101
  11. HYDRALAZINE HCL [Concomitant]
     Indication: HYPERTENSION
     Route: 065
     Dates: start: 20040101
  12. HUMALOG [Concomitant]
     Indication: TYPE 2 DIABETES MELLITUS
     Route: 065
     Dates: start: 20070101
  13. TRICOR [Concomitant]
     Indication: HYPERLIPIDAEMIA
     Route: 065
     Dates: start: 20080101
  14. CRESTOR [Concomitant]
     Indication: HYPERLIPIDAEMIA
     Route: 065
     Dates: start: 20080101
  15. VITAMIN D [Concomitant]
     Indication: VITAMIN D DEFICIENCY
     Route: 065
     Dates: start: 20080101
  16. TORSEMIDE [Concomitant]
     Indication: HYPERTENSION
     Route: 065
     Dates: start: 20080101
  17. CITALOPRAM [Concomitant]
     Indication: DEPRESSION
     Route: 065
     Dates: start: 20090101
  18. LEVOTHYROXINE SODIUM [Concomitant]
     Indication: HYPOTHYROIDISM
     Dates: start: 19840101
  19. BACTRIM DS [Concomitant]
     Indication: PROPHYLAXIS
     Route: 065
     Dates: start: 20040101
  20. GLIMEPIRIDE [Concomitant]
     Indication: TYPE 2 DIABETES MELLITUS
     Route: 065
     Dates: start: 20070101
  21. VICODIN [Concomitant]
     Indication: PAIN
     Dosage: 1 DF=5/500 MG
     Route: 065
     Dates: start: 20040101
  22. LANTUS [Concomitant]
     Indication: TYPE 2 DIABETES MELLITUS
     Route: 065
     Dates: start: 20070101
  23. VITAMIN B-12 [Concomitant]
     Indication: FATIGUE
     Route: 065
     Dates: start: 20090714
  24. AREDIN [Concomitant]
     Indication: METASTASES TO BONE
     Route: 065
     Dates: start: 20090719
  25. ARANESP [Concomitant]
     Indication: HAEMOGLOBIN DECREASED
     Route: 065
     Dates: start: 20090919
  26. MIRACLE MOUTHWASH [Concomitant]
     Indication: MUCOSAL INFLAMMATION
     Route: 065
     Dates: start: 20090911
  27. OXYCONTIN [Concomitant]
     Route: 065
  28. NEUPOGEN [Concomitant]
     Indication: WHITE BLOOD CELL COUNT DECREASED
     Route: 058
     Dates: start: 20090918

REACTIONS (4)
  - ANAEMIA [None]
  - DYSPNOEA [None]
  - NEUTROPENIA [None]
  - THROMBOCYTOPENIA [None]
